FAERS Safety Report 9071695 (Version 1)
Quarter: 2013Q1

REPORT INFORMATION
  Report Type: Report from Study
  Country: US (occurrence: US)
  Receive Date: 20130129
  Receipt Date: 20130129
  Transmission Date: 20140127
  Serious: Yes (Other)
  Sender: FDA-Public Use
  Company Number: US-ROCHE-1181987

PATIENT
  Sex: 0

DRUGS (4)
  1. RITUXIMAB [Suspect]
     Indication: LYMPHOMA
     Dosage: UPTO 2 CYCLES
     Route: 065
  2. CARBOPLATIN [Suspect]
     Indication: LYMPHOMA
     Dosage: AUC = 5 ON DAY 1
     Route: 065
  3. ETOPOSIDE [Suspect]
     Indication: LYMPHOMA
     Dosage: ON DAYS 1 TO 3
     Route: 065
  4. BENDAMUSTINE [Suspect]
     Indication: LYMPHOMA
     Route: 065

REACTIONS (2)
  - Febrile neutropenia [Unknown]
  - Dehydration [Unknown]
